FAERS Safety Report 4503157-7 (Version None)
Quarter: 2004Q4

REPORT INFORMATION
  Report Type: 
  Country: None (occurrence: None)
  Receive Date: 20041117
  Receipt Date: 20041108
  Transmission Date: 20050328
  Serious: Yes (Death)
  Sender: FDA-Public Use
  Company Number: US-MERCK-0411USA01515

PATIENT
  Sex: Female

DRUGS (7)
  1. DECADRON [Suspect]
     Route: 048
  2. PAXIL [Concomitant]
     Route: 065
  3. CARBOPLATIN [Concomitant]
     Route: 065
  4. ETHYOL [Concomitant]
     Route: 065
  5. DECADRON [Concomitant]
     Route: 042
  6. BENADRYL [Concomitant]
     Route: 065
  7. TAGAMET [Concomitant]
     Route: 065

REACTIONS (1)
  - CARCINOMA [None]
